FAERS Safety Report 24542272 (Version 1)
Quarter: 2024Q4

REPORT INFORMATION
  Report Type: Spontaneous
  Country: CA (occurrence: CA)
  Receive Date: 20241023
  Receipt Date: 20241023
  Transmission Date: 20250115
  Serious: Yes (Other)
  Sender: JOHNSON AND JOHNSON
  Company Number: CA-JNJFOC-20241051942

PATIENT
  Age: 54 Year
  Sex: Female

DRUGS (2)
  1. STELARA [Suspect]
     Active Substance: USTEKINUMAB
     Indication: Colitis ulcerative
     Route: 058
  2. LETROZOLE [Suspect]
     Active Substance: LETROZOLE
     Indication: Invasive ductal breast carcinoma
     Route: 065

REACTIONS (7)
  - Colitis ulcerative [Unknown]
  - Invasive ductal breast carcinoma [Unknown]
  - Burnout syndrome [Unknown]
  - Insomnia [Unknown]
  - Arthralgia [Unknown]
  - Anxiety [Unknown]
  - Adverse event [Unknown]
